FAERS Safety Report 7324188-8 (Version None)
Quarter: 2011Q1

REPORT INFORMATION
  Report Type: 
  Country: None (occurrence: None)
  Receive Date: 20110217
  Receipt Date: 20110214
  Transmission Date: 20110831
  Serious: Yes (Life-Threatening, Hospitalization, Other)
  Sender: FDA-Public Use
  Company Number: 201110097

PATIENT
  Sex: Male

DRUGS (1)
  1. LIORESAL [Suspect]
     Indication: MUSCLE SPASTICITY
     Dosage: 305.68 MCG, DAILY, INTRATHECAL
     Route: 037

REACTIONS (3)
  - CONVULSION [None]
  - CATHETER SITE RELATED REACTION [None]
  - HYPOXIC-ISCHAEMIC ENCEPHALOPATHY [None]
